FAERS Safety Report 4380097-8 (Version None)
Quarter: 2004Q2

REPORT INFORMATION
  Report Type: 
  Country: None (occurrence: None)
  Receive Date: 20040614
  Receipt Date: 20040319
  Transmission Date: 20050107
  Serious: No
  Sender: FDA-Public Use
  Company Number: M04-341-050

PATIENT
  Age: 71 Year
  Sex: Male
  Weight: 90 kg

DRUGS (6)
  1. VELCADE [Suspect]
     Indication: MULTIPLE MYELOMA
     Dosage: 3.5 MG: INTRAVENOUS BOLUS
     Route: 040
     Dates: start: 20040223, end: 20040223
  2. DOLASETRON MESILATE [Concomitant]
  3. NAPROXEN [Concomitant]
  4. ONDANSETRON HCL [Concomitant]
  5. OXYCODONE HCL [Concomitant]
  6. SERTRALINE HCL [Concomitant]

REACTIONS (5)
  - ATAXIA [None]
  - CONFUSIONAL STATE [None]
  - DIZZINESS [None]
  - GAIT DISTURBANCE [None]
  - HYPERTENSION [None]
